FAERS Safety Report 8761771 (Version 2)
Quarter: 2012Q4

REPORT INFORMATION
  Report Type: Spontaneous
  Country: GB (occurrence: None)
  Receive Date: 20120822
  Receipt Date: 20120911
  Transmission Date: 20130627
  Serious: Yes (Other)
  Sender: FDA-Public Use
  Company Number: GB-1193783

PATIENT
  Age: 70 Year
  Sex: Female

DRUGS (2)
  1. TRIESENCE INJECTION (TRIAMCINOLONE 40 MG/ML) [Suspect]
     Indication: MACULAR OEDEMA
     Route: 031
  2. BETADINE [Concomitant]

REACTIONS (1)
  - Endophthalmitis [None]
